FAERS Safety Report 9464872 (Version 1)
Quarter: 2013Q3

REPORT INFORMATION
  Report Type: Spontaneous
  Country: GB (occurrence: GB)
  Receive Date: 20130819
  Receipt Date: 20130819
  Transmission Date: 20140515
  Serious: Yes (Hospitalization)
  Sender: FDA-Public Use
  Company Number: PHHY2013GB086853

PATIENT
  Age: 49 Year
  Sex: Male

DRUGS (16)
  1. CITALOPRAM [Suspect]
     Dosage: 280 MG, UNK
     Dates: start: 20130707
  2. CITALOPRAM [Suspect]
     Dosage: 40 MG, DAILY
  3. AMISULPRIDE [Suspect]
     Dosage: 3150 MG, UNK
  4. AMISULPRIDE [Suspect]
     Dosage: 450 MG, DAILY
     Dates: start: 20130707
  5. OMEPRAZOLE [Suspect]
     Dosage: 140 MG, UNK
     Dates: start: 20130707
  6. OMEPRAZOLE [Suspect]
     Dosage: 20 MG, DAILY
  7. ATORVASTATIN [Suspect]
     Dosage: 210 MG, UNK
     Dates: start: 20130707
  8. ATORVASTATIN [Suspect]
     Dosage: 30 MG, DAILY
  9. METFORMIN [Suspect]
     Dosage: 10500 MG, UNK
     Dates: start: 20130707
  10. METFORMIN [Suspect]
     Dosage: 1500 MG, DAILY
  11. ZAPONEX [Suspect]
     Dosage: 4.9 G, UNK
     Route: 048
     Dates: start: 20130707
  12. ZAPONEX [Suspect]
     Route: 048
     Dates: start: 20110802, end: 201307
  13. ASPIRIN [Suspect]
     Dosage: 525 MG, UNK
     Dates: start: 20130707
  14. ASPIRIN [Suspect]
     Dosage: 75 MG, DAILY
  15. ACAMPROSATE [Suspect]
     Dosage: 13860 MG, UNK
     Dates: start: 20130707
  16. ACAMPROSATE [Suspect]
     Dosage: 1980 MG, DAILY

REACTIONS (3)
  - Cardiovascular disorder [Unknown]
  - Hypoventilation [Recovering/Resolving]
  - Overdose [Recovered/Resolved with Sequelae]
